FAERS Safety Report 25928701 (Version 2)
Quarter: 2025Q4

REPORT INFORMATION
  Report Type: Spontaneous
  Country: US (occurrence: US)
  Receive Date: 20251016
  Receipt Date: 20251030
  Transmission Date: 20260117
  Serious: Yes (Other)
  Sender: TEVA
  Company Number: US-TEVA-VS-3379927

PATIENT
  Age: 69 Year
  Sex: Female

DRUGS (13)
  1. PREDNISONE [Suspect]
     Active Substance: PREDNISONE
     Indication: Granulomatosis with polyangiitis
     Route: 065
  2. PREDNISONE [Suspect]
     Active Substance: PREDNISONE
     Indication: Granulomatosis with polyangiitis
     Route: 065
     Dates: end: 202410
  3. METHOTREXATE [Suspect]
     Active Substance: METHOTREXATE
     Indication: Granulomatosis with polyangiitis
     Route: 065
  4. RITUXIMAB [Suspect]
     Active Substance: RITUXIMAB
     Indication: Granulomatosis with polyangiitis
     Route: 065
  5. TRIAMCINOLONE [Suspect]
     Active Substance: TRIAMCINOLONE
     Indication: Alopecia areata
     Route: 026
  6. BARICITINIB [Concomitant]
     Active Substance: BARICITINIB
     Indication: Alopecia areata
     Route: 065
  7. BARICITINIB [Concomitant]
     Active Substance: BARICITINIB
     Indication: Alopecia areata
     Route: 065
     Dates: start: 202208
  8. AZATHIOPRINE [Suspect]
     Active Substance: AZATHIOPRINE
     Indication: Granulomatosis with polyangiitis
     Route: 065
  9. LEFLUNOMIDE [Suspect]
     Active Substance: LEFLUNOMIDE
     Indication: Granulomatosis with polyangiitis
     Route: 065
  10. MINOXIDIL [Suspect]
     Active Substance: MINOXIDIL
     Indication: Alopecia areata
     Route: 048
  11. MINOXIDIL [Suspect]
     Active Substance: MINOXIDIL
     Indication: Alopecia areata
     Route: 061
  12. ABATACEPT [Suspect]
     Active Substance: ABATACEPT
     Indication: Granulomatosis with polyangiitis
     Route: 065
  13. CLOBETASOL [Suspect]
     Active Substance: CLOBETASOL
     Indication: Alopecia areata
     Route: 061

REACTIONS (8)
  - Stomatitis [Unknown]
  - Osteopenia [Unknown]
  - Headache [Unknown]
  - Drug ineffective [Unknown]
  - Insomnia [Unknown]
  - Cushing^s syndrome [Unknown]
  - Ear pain [Unknown]
  - Drug resistance [Unknown]
